FAERS Safety Report 11074314 (Version 3)
Quarter: 2015Q4

REPORT INFORMATION
  Report Type: Spontaneous
  Country: US (occurrence: US)
  Receive Date: 20150428
  Receipt Date: 20151029
  Transmission Date: 20160304
  Serious: Yes (Hospitalization, Other)
  Sender: FDA-Public Use
  Company Number: US-GLAXOSMITHKLINE-A1035070A

PATIENT
  Sex: Female

DRUGS (22)
  1. ADVAIR HFA [Suspect]
     Active Substance: FLUTICASONE PROPIONATE\SALMETEROL XINAFOATE
     Indication: ASTHMA
     Dosage: 250/50 MCG,UNK
     Route: 055
     Dates: start: 20121010
  2. ADVAIR HFA [Suspect]
     Active Substance: FLUTICASONE PROPIONATE\SALMETEROL XINAFOATE
     Dosage: 500/50 MCG, U
     Route: 055
  3. JANTOVEN [Concomitant]
     Active Substance: WARFARIN SODIUM
  4. CEFUROXIME. [Concomitant]
     Active Substance: CEFUROXIME
  5. OXYBUTIN [Concomitant]
     Active Substance: OXYBUTYNIN
  6. METOPROLOL [Concomitant]
     Active Substance: METOPROLOL
  7. VENTOLIN HFA [Suspect]
     Active Substance: ALBUTEROL SULFATE
     Indication: ASTHMA
     Dosage: 90 MCG, 1 PUFF, PRN
     Route: 055
     Dates: start: 20121010
  8. SIMVASTATIN. [Concomitant]
     Active Substance: SIMVASTATIN
  9. RANITIDINE [Concomitant]
     Active Substance: RANITIDINE\RANITIDINE HYDROCHLORIDE
  10. GABAPENTIN. [Concomitant]
     Active Substance: GABAPENTIN
  11. HYDROCODONE [Concomitant]
     Active Substance: HYDROCODONE
  12. ADVAIR HFA [Suspect]
     Active Substance: FLUTICASONE PROPIONATE\SALMETEROL XINAFOATE
     Dosage: 250/50 MCG,1 PUFF(S), QD
     Route: 055
  13. LANTUS [Concomitant]
     Active Substance: INSULIN GLARGINE
  14. BUPROPION SR [Concomitant]
     Active Substance: BUPROPION
  15. NOVOLIN [Concomitant]
     Active Substance: INSULIN HUMAN
  16. GLIMEPIRIDE. [Concomitant]
     Active Substance: GLIMEPIRIDE
  17. HYDROCHLOROTHIAZIDE + LOSARTAN [Concomitant]
  18. PLAVIX [Concomitant]
     Active Substance: CLOPIDOGREL BISULFATE
  19. DUONEB [Concomitant]
     Active Substance: ALBUTEROL SULFATE\IPRATROPIUM BROMIDE
  20. LORATIDINE [Concomitant]
     Active Substance: LORATADINE
  21. SINGULAIR [Concomitant]
     Active Substance: MONTELUKAST SODIUM
  22. FLUTICASONE PROPIONATE. [Concomitant]
     Active Substance: FLUTICASONE PROPIONATE

REACTIONS (7)
  - Cellulitis [Not Recovered/Not Resolved]
  - Emergency care [Recovered/Resolved]
  - Asthma [Unknown]
  - Drug ineffective [Unknown]
  - Laryngitis [Unknown]
  - Intentional underdose [Unknown]
  - Drug dose omission [Unknown]

NARRATIVE: CASE EVENT DATE: 2015
